FAERS Safety Report 7474102-X (Version None)
Quarter: 2011Q2

REPORT INFORMATION
  Report Type: 
  Country: None (occurrence: None)
  Receive Date: 20110511
  Receipt Date: 20110503
  Transmission Date: 20111010
  Serious: Yes (Other)
  Sender: FDA-Public Use
  Company Number: US-BAXTER-2009BH008652

PATIENT
  Age: 57 Year
  Sex: Female
  Weight: 56 kg

DRUGS (12)
  1. EPOGEN [Concomitant]
     Indication: PRODUCT USED FOR UNKNOWN INDICATION
     Route: 065
  2. DIANEAL [Concomitant]
     Indication: PERITONEAL DIALYSIS
     Route: 033
     Dates: start: 20000601
  3. IRON [Concomitant]
     Indication: PRODUCT USED FOR UNKNOWN INDICATION
     Route: 065
  4. LISINOPRIL [Concomitant]
     Indication: PRODUCT USED FOR UNKNOWN INDICATION
     Route: 065
  5. PROCRIT [Concomitant]
     Indication: PRODUCT USED FOR UNKNOWN INDICATION
     Route: 065
  6. NIFEDIPINE [Concomitant]
     Indication: PRODUCT USED FOR UNKNOWN INDICATION
     Route: 065
  7. DIANEAL [Concomitant]
     Indication: PERITONEAL DIALYSIS
     Route: 033
     Dates: start: 20090501, end: 20090601
  8. CALCITRIOL [Concomitant]
     Indication: PRODUCT USED FOR UNKNOWN INDICATION
     Route: 065
  9. EXTRANEAL [Suspect]
     Indication: PERITONEAL DIALYSIS
     Route: 033
     Dates: start: 20090501, end: 20090501
  10. METOPROLOL SUCCINATE [Concomitant]
     Indication: PRODUCT USED FOR UNKNOWN INDICATION
     Route: 065
  11. VITAMIN D [Concomitant]
     Indication: PRODUCT USED FOR UNKNOWN INDICATION
     Route: 065
  12. RENAL VIT [Concomitant]
     Indication: PRODUCT USED FOR UNKNOWN INDICATION
     Route: 065

REACTIONS (13)
  - METABOLIC DISORDER [None]
  - HYPERLIPIDAEMIA [None]
  - PYREXIA [None]
  - RASH [None]
  - INFECTION [None]
  - BURNING SENSATION [None]
  - INFLUENZA LIKE ILLNESS [None]
  - SKIN EXFOLIATION [None]
  - ABDOMINAL DISCOMFORT [None]
  - OSTEOMYELITIS [None]
  - PAIN [None]
  - CACHEXIA [None]
  - BONE DEVELOPMENT ABNORMAL [None]
